FAERS Safety Report 5633964-9 (Version None)
Quarter: 2008Q1

REPORT INFORMATION
  Report Type: 
  Country: None (occurrence: None)
  Receive Date: 20080131
  Receipt Date: 20071214
  Transmission Date: 20080703
  Serious: No
  Sender: FDA-Public Use
  Company Number: PHEH2007US15110

PATIENT
  Age: 80 Year
  Sex: Female

DRUGS (3)
  1. TEKTURNA [Suspect]
     Dosage: 300 MG, QD
  2. ATENOLOL [Concomitant]
  3. ALTACE [Concomitant]

REACTIONS (3)
  - COUGH [None]
  - MUSCLE SPASMS [None]
  - SPEECH DISORDER [None]
